FAERS Safety Report 9783893 (Version 1)
Quarter: 2013Q4

REPORT INFORMATION
  Report Type: Spontaneous
  Country: US (occurrence: US)
  Receive Date: 20131226
  Receipt Date: 20131226
  Transmission Date: 20140711
  Serious: Yes (Hospitalization, Other)
  Sender: FDA-Public Use
  Company Number: US-B.I. PHARMACEUTICALS,INC./RIDGEFIELD-2013-BI-42971BP

PATIENT
  Age: 75 Year
  Sex: Female

DRUGS (15)
  1. TRADJENTA [Suspect]
     Indication: TYPE 2 DIABETES MELLITUS
     Dosage: 5 MG
     Route: 048
     Dates: start: 20120328, end: 20130908
  2. LIPITOR [Concomitant]
  3. GABAPENTIN [Concomitant]
  4. TIZANIDINE [Concomitant]
  5. LANTUS [Concomitant]
  6. ZOLOFT [Concomitant]
  7. LISINOPRIL [Concomitant]
  8. ATENOLOL [Concomitant]
  9. CALCIUM WITH VITAMIN D3 [Concomitant]
  10. LIMBITROL [Concomitant]
  11. COUMADIN [Concomitant]
  12. VITAMIN B12 [Concomitant]
  13. DYAZIDE [Concomitant]
  14. REGLAN [Concomitant]
  15. ZYRTEC [Concomitant]

REACTIONS (3)
  - Pancreatitis acute [Recovered/Resolved]
  - Dehydration [Recovered/Resolved]
  - Renal failure acute [Recovered/Resolved]
